FAERS Safety Report 16895976 (Version 1)
Quarter: 2019Q4

REPORT INFORMATION
  Report Type: Spontaneous
  Country: US (occurrence: US)
  Receive Date: 20191008
  Receipt Date: 20191008
  Transmission Date: 20200122
  Serious: No
  Sender: FDA-Public Use
  Company Number: US-PERRIGO-19US008799

PATIENT
  Age: 83 Year
  Sex: Female

DRUGS (1)
  1. ERYTHROMYCIN. [Suspect]
     Active Substance: ERYTHROMYCIN
     Indication: EYE DISCHARGE
     Dosage: UNK, AT HS
     Route: 047
     Dates: start: 20190720, end: 20190720

REACTIONS (2)
  - Ocular hyperaemia [Unknown]
  - Eye pruritus [Unknown]

NARRATIVE: CASE EVENT DATE: 20190721
